FAERS Safety Report 15879154 (Version 4)
Quarter: 2019Q1

REPORT INFORMATION
  Report Type: Spontaneous
  Country: US (occurrence: US)
  Receive Date: 20190128
  Receipt Date: 20190314
  Transmission Date: 20190417
  Serious: Yes (Other)
  Sender: FDA-Public Use
  Company Number: US-BAYER-2019-017055

PATIENT
  Age: 22 Year
  Sex: Female
  Weight: 56 kg

DRUGS (6)
  1. SKYLA [Suspect]
     Active Substance: LEVONORGESTREL
     Indication: CONTRACEPTION
     Dosage: 14 MCG/24HR, CONT
     Route: 015
     Dates: start: 20180917, end: 20190115
  2. NITROFURANTOIN. [Concomitant]
     Active Substance: NITROFURANTOIN
  3. FLUCONAZOL [Concomitant]
     Active Substance: FLUCONAZOLE
     Indication: FUNGAL INFECTION
     Dosage: UNK UNK, QD
     Route: 048
  4. DICLOFENAC SODIUM. [Concomitant]
     Active Substance: DICLOFENAC SODIUM
     Dosage: 50 MG, TID
     Route: 048
  5. TOLTERODINE TARTRATE. [Concomitant]
     Active Substance: TOLTERODINE TARTRATE
  6. FLAGYL [Concomitant]
     Active Substance: METRONIDAZOLE\METRONIDAZOLE HYDROCHLORIDE
     Dosage: 500 MG, BID
     Route: 048

REACTIONS (12)
  - Cervix haemorrhage uterine [None]
  - Vaginal discharge [None]
  - Abdominal distension [None]
  - Ovarian cyst [None]
  - Abdominal pain lower [None]
  - Fungal infection [None]
  - Dysmenorrhoea [None]
  - Vaginal haemorrhage [None]
  - Vaginal infection [None]
  - Embedded device [None]
  - Pelvic pain [None]
  - Cervicitis [None]
